FAERS Safety Report 7481741-9 (Version None)
Quarter: 2011Q2

REPORT INFORMATION
  Report Type: 
  Country: None (occurrence: None)
  Receive Date: 20110516
  Receipt Date: 20110509
  Transmission Date: 20111010
  Serious: Yes (Other)
  Sender: FDA-Public Use
  Company Number: A0927340A

PATIENT
  Age: 57 Year
  Sex: Male

DRUGS (4)
  1. BUPROPION HYDROCHLORIDE [Suspect]
     Indication: DEPRESSION
     Route: 048
  2. LAMICTAL [Suspect]
     Indication: BIPOLAR DISORDER
     Dosage: 300MG PER DAY
     Route: 048
  3. LAMOTRIGINE [Suspect]
     Indication: BIPOLAR DISORDER
     Dosage: 200MG PER DAY
     Route: 048
  4. WELLBUTRIN [Suspect]
     Indication: DEPRESSION
     Route: 048

REACTIONS (8)
  - NICOTINE DEPENDENCE [None]
  - ALOPECIA [None]
  - ERYTHEMA [None]
  - DERMATITIS ACNEIFORM [None]
  - PRURITUS [None]
  - MEMORY IMPAIRMENT [None]
  - WOUND HAEMORRHAGE [None]
  - ATTENTION DEFICIT/HYPERACTIVITY DISORDER [None]
